FAERS Safety Report 11264281 (Version 1)
Quarter: 2015Q3

REPORT INFORMATION
  Report Type: Spontaneous
  Country: US (occurrence: US)
  Receive Date: 20150713
  Receipt Date: 20150713
  Transmission Date: 20151125
  Serious: No
  Sender: FDA-Public Use
  Company Number: US-JNJFOC-20150207584

PATIENT
  Age: 71 Year
  Sex: Female
  Weight: 77.11 kg

DRUGS (11)
  1. IMODIUM MULTI-SYMPTOM RELIEF [Suspect]
     Active Substance: DIMETHICONE\LOPERAMIDE HYDROCHLORIDE
     Indication: DIARRHOEA
     Dosage: 1-2 CAPLETS, UP TO 5 TIMES PER DAY
     Route: 048
  2. BENEFIBER [Concomitant]
     Active Substance: STARCH, WHEAT
     Indication: NUTRITIONAL SUPPLEMENTATION
     Dosage: 6-8 YEARS INTERVAL
     Route: 065
  3. METOPROLOL [Concomitant]
     Active Substance: METOPROLOL
     Indication: HYPERTENSION
     Dosage: 5 YEARS : INTERVAL
     Route: 065
  4. CALCIUM AND VITAMIN D COMBINATION [Concomitant]
     Indication: MINERAL SUPPLEMENTATION
     Dosage: 6-8 YEARS
     Route: 065
  5. ASPIRIN. [Concomitant]
     Active Substance: ASPIRIN
     Indication: CARDIAC DISORDER
     Dosage: 6-8 YEARS INTERVAL
     Route: 065
  6. ATORVASTATIN [Concomitant]
     Active Substance: ATORVASTATIN
     Indication: BLOOD CHOLESTEROL INCREASED
     Dosage: 4 MONTHS : INTERVAL
     Route: 065
  7. ASPIRIN. [Concomitant]
     Active Substance: ASPIRIN
     Indication: ATRIAL FIBRILLATION
     Dosage: 6-8 YEARS INTERVAL
     Route: 065
  8. LISINOPRIL. [Concomitant]
     Active Substance: LISINOPRIL
     Indication: ATRIAL FIBRILLATION
     Dosage: 7 YEARS : INTERVAL
     Route: 065
  9. IMODIUM MULTI-SYMPTOM RELIEF [Suspect]
     Active Substance: DIMETHICONE\LOPERAMIDE HYDROCHLORIDE
     Route: 048
  10. GABAPENTIN. [Concomitant]
     Active Substance: GABAPENTIN
     Indication: NEUROPATHY PERIPHERAL
     Dosage: 8-9 YEARS : INTERVAL
     Route: 065
  11. MAGNESIUM [Concomitant]
     Active Substance: MAGNESIUM
     Dosage: 6-8 YEARS
     Route: 065

REACTIONS (4)
  - Product quality issue [Unknown]
  - Choking [Recovered/Resolved]
  - Intentional product use issue [Unknown]
  - Product difficult to swallow [Recovered/Resolved]
